FAERS Safety Report 19263486 (Version 1)
Quarter: 2021Q2

REPORT INFORMATION
  Report Type: Spontaneous
  Country: US (occurrence: US)
  Receive Date: 20210517
  Receipt Date: 20210517
  Transmission Date: 20210717
  Serious: No
  Sender: FDA-Public Use
  Company Number: US-SA-2021SA156204

PATIENT
  Age: 50 Year
  Sex: Female

DRUGS (1)
  1. DUPIXENT [Suspect]
     Active Substance: DUPILUMAB
     Indication: DERMATITIS ALLERGIC
     Dosage: 300 MG, QOW
     Route: 058
     Dates: start: 2018

REACTIONS (6)
  - Erythema [Unknown]
  - Product use in unapproved indication [Unknown]
  - Skin atrophy [Unknown]
  - Periorbital haemorrhage [Unknown]
  - Dry skin [Unknown]
  - Seasonal allergy [Unknown]

NARRATIVE: CASE EVENT DATE: 2018
